FAERS Safety Report 5482773-2 (Version None)
Quarter: 2007Q4

REPORT INFORMATION
  Report Type: 
  Country: None (occurrence: None)
  Receive Date: 20071011
  Receipt Date: 20070928
  Transmission Date: 20080405
  Serious: Yes (Other)
  Sender: FDA-Public Use
  Company Number: US-PFIZER INC-2007081736

PATIENT
  Sex: Female
  Weight: 51.363 kg

DRUGS (6)
  1. LOPID [Suspect]
     Indication: BLOOD TRIGLYCERIDES INCREASED
     Dates: start: 20020101, end: 20050101
  2. LOPID [Suspect]
     Indication: BLOOD CHOLESTEROL INCREASED
  3. ATENOLOL [Concomitant]
  4. GLIMEPIRIDE [Concomitant]
  5. ACETYLSALICYLIC ACID [Concomitant]
  6. METFORMIN HCL [Concomitant]

REACTIONS (9)
  - BALANCE DISORDER [None]
  - MUSCLE SPASMS [None]
  - MUSCLE STRAIN [None]
  - PNEUMONIA [None]
  - RENAL ARTERY STENOSIS [None]
  - SKIN DISORDER [None]
  - SKIN WRINKLING [None]
  - STOMACH DISCOMFORT [None]
  - WEIGHT DECREASED [None]
